FAERS Safety Report 13354713 (Version 1)
Quarter: 2017Q1

REPORT INFORMATION
  Report Type: Spontaneous
  Country: US (occurrence: US)
  Receive Date: 20170321
  Receipt Date: 20170321
  Transmission Date: 20170429
  Serious: Yes (Death)
  Sender: FDA-Public Use
  Company Number: US-HQ SPECIALTY-US-2017INT000076

PATIENT
  Age: 66 Year
  Sex: Male

DRUGS (12)
  1. CISPLATIN. [Suspect]
     Active Substance: CISPLATIN
     Indication: HISTIOCYTOSIS HAEMATOPHAGIC
     Dosage: 25 MG/M2, ON DAYS 26 TO 29
  2. ETOPOSIDE. [Suspect]
     Active Substance: ETOPOSIDE
     Indication: HISTIOCYTOSIS HAEMATOPHAGIC
     Dosage: 40 MG/M2, ON DAYS 26 TO 29
  3. DEXAMETHASONE. [Suspect]
     Active Substance: DEXAMETHASONE
     Indication: HODGKIN^S DISEASE
  4. DEXAMETHASONE. [Suspect]
     Active Substance: DEXAMETHASONE
     Indication: HISTIOCYTOSIS HAEMATOPHAGIC
     Dosage: 10 MG/M2, QD FOR 2 WEEKS
  5. RITUXIMAB [Suspect]
     Active Substance: RITUXIMAB
     Indication: HODGKIN^S DISEASE
  6. METHYLPREDNISOLONE. [Suspect]
     Active Substance: METHYLPREDNISOLONE
     Indication: HODGKIN^S DISEASE
  7. CISPLATIN. [Suspect]
     Active Substance: CISPLATIN
     Indication: HODGKIN^S DISEASE
  8. CYTARABINE. [Suspect]
     Active Substance: CYTARABINE
     Indication: HISTIOCYTOSIS HAEMATOPHAGIC
     Dosage: 1000 MG/M2, ON DAYS 26 TO 29
  9. RITUXIMAB [Suspect]
     Active Substance: RITUXIMAB
     Indication: HISTIOCYTOSIS HAEMATOPHAGIC
     Dosage: 375 MG/M2, ON DAY 25
  10. ETOPOSIDE. [Suspect]
     Active Substance: ETOPOSIDE
     Indication: HODGKIN^S DISEASE
     Dosage: UNK (75% REDUCTION, WITH INCRASES BY 25% OVER 2 WEEKS
  11. METHYLPREDNISOLONE. [Suspect]
     Active Substance: METHYLPREDNISOLONE
     Indication: HISTIOCYTOSIS HAEMATOPHAGIC
     Dosage: 500 MG, ON DAYS 26 TO 28
  12. CYTARABINE. [Suspect]
     Active Substance: CYTARABINE
     Indication: HODGKIN^S DISEASE

REACTIONS (2)
  - Large intestine perforation [Fatal]
  - Enterococcal infection [Fatal]
